FAERS Safety Report 7494846-3 (Version None)
Quarter: 2011Q2

REPORT INFORMATION
  Report Type: 
  Country: None (occurrence: None)
  Receive Date: 20110520
  Receipt Date: 20110516
  Transmission Date: 20111010
  Serious: Yes (Other)
  Sender: FDA-Public Use
  Company Number: D0071393A

PATIENT
  Sex: Female
  Weight: 49 kg

DRUGS (5)
  1. FOLIC ACID [Concomitant]
     Indication: PROPHYLAXIS OF NEURAL TUBE DEFECT
     Route: 048
  2. IODINE [Concomitant]
     Indication: PROPHYLAXIS OF NEURAL TUBE DEFECT
     Route: 048
  3. LAMOTRIGINE [Suspect]
     Indication: BORDERLINE PERSONALITY DISORDER
     Dosage: 150MG PER DAY
     Route: 048
  4. FLUOXETINE HCL [Suspect]
     Indication: OBSESSIVE-COMPULSIVE DISORDER
     Dosage: 30MG PER DAY
     Route: 048
  5. VITAMINS [Concomitant]
     Indication: PROPHYLAXIS OF NEURAL TUBE DEFECT
     Route: 048

REACTIONS (1)
  - ABORTION MISSED [None]
